FAERS Safety Report 24342998 (Version 1)
Quarter: 2024Q3

REPORT INFORMATION
  Report Type: Spontaneous
  Country: JP (occurrence: JP)
  Receive Date: 20240920
  Receipt Date: 20240920
  Transmission Date: 20241017
  Serious: Yes (Life-Threatening, Hospitalization)
  Sender: MYLAN
  Company Number: JP-MYLANLABS-2024M1084458

PATIENT
  Age: 70 Year
  Sex: Female

DRUGS (4)
  1. PREDNISOLONE [Suspect]
     Active Substance: PREDNISOLONE
     Indication: Myasthenia gravis
     Dosage: RECEIVED PREDNISOLONE 1.0-10.0MG
     Route: 048
  2. TACROLIMUS [Suspect]
     Active Substance: TACROLIMUS
     Indication: Myasthenia gravis
     Dosage: RECEIVED TACROLIMUS 1.0-2.0MG
     Route: 065
  3. METHYLPREDNISOLONE [Suspect]
     Active Substance: METHYLPREDNISOLONE
     Indication: Myasthenia gravis
     Dosage: RECEIVED CYCLE OF HALF-DOSE METHYLPREDNISOLONE PULSE THERAPY FOR 3-CONSECUTIVE DAYS
     Route: 042
  4. METHYLPREDNISOLONE [Suspect]
     Active Substance: METHYLPREDNISOLONE
     Dosage: 1000 MILLIGRAM, QD
     Route: 042

REACTIONS (2)
  - Hyperglycaemia [Unknown]
  - Treatment noncompliance [Unknown]
